FAERS Safety Report 8095833-7 (Version None)
Quarter: 2012Q1

REPORT INFORMATION
  Report Type: 
  Country: None (occurrence: None)
  Receive Date: 20120129
  Receipt Date: 20111222
  Transmission Date: 20120608
  Serious: No
  Sender: FDA-Public Use
  Company Number: US-ABBOTT-11P-163-0886250-00

PATIENT
  Sex: Male
  Weight: 88.53 kg

DRUGS (9)
  1. FENOFIBRATE [Concomitant]
     Indication: BLOOD CHOLESTEROL INCREASED
  2. ACTOS [Concomitant]
     Indication: DIABETES MELLITUS
  3. LIPITOR [Concomitant]
     Indication: BLOOD CHOLESTEROL INCREASED
  4. METFORMIN HCL [Concomitant]
     Indication: DIABETES MELLITUS
  5. PRASTERONE [Concomitant]
     Indication: NUTRITIONAL SUPPORT
  6. NEXIUM [Concomitant]
     Indication: GASTROOESOPHAGEAL REFLUX DISEASE
  7. HUMIRA [Suspect]
     Indication: CROHN'S DISEASE
     Dates: start: 20110901
  8. VITAMIN D [Concomitant]
     Indication: BONE DISORDER
  9. LISINOPRIL [Concomitant]
     Indication: HYPERTENSION

REACTIONS (2)
  - INJECTION SITE PRURITUS [None]
  - INJECTION SITE HAEMATOMA [None]
